FAERS Safety Report 11094092 (Version 1)
Quarter: 2015Q2

REPORT INFORMATION
  Report Type: Spontaneous
  Country: DE (occurrence: DE)
  Receive Date: 20150506
  Receipt Date: 20150506
  Transmission Date: 20150821
  Serious: Yes (Life-Threatening, Hospitalization)
  Sender: FDA-Public Use
  Company Number: DE-ACTAVIS-2015-09004

PATIENT
  Age: 73 Year
  Sex: Female

DRUGS (5)
  1. IBUPROFEN. [Concomitant]
     Active Substance: IBUPROFEN
     Indication: PAIN
     Dosage: 600 MG, UNKNOWN
     Route: 048
     Dates: start: 20150312, end: 20150317
  2. SIMVASTATIN (UNKNOWN) [Suspect]
     Active Substance: SIMVASTATIN
     Indication: HYPERCHOLESTEROLAEMIA
     Dosage: 40 MG, UNKNOWN
     Route: 048
     Dates: start: 20141110, end: 20150317
  3. LYRICA [Suspect]
     Active Substance: PREGABALIN
     Indication: PAIN
     Dosage: 75 MG, BID
     Route: 048
     Dates: start: 20141110
  4. AMITRIPTYLIN [Concomitant]
     Active Substance: AMITRIPTYLINE
     Indication: DEPRESSION
     Dosage: 50 MG, UNKNOWN
     Route: 048
     Dates: start: 20141110, end: 20150317
  5. M-STADA [Suspect]
     Active Substance: MORPHINE HYDROCHLORIDE
     Indication: PAIN
     Dosage: 10 MG, UNKNOWN
     Route: 048
     Dates: start: 20150312, end: 20150320

REACTIONS (8)
  - Rhabdomyolysis [Recovering/Resolving]
  - Acidosis [Recovering/Resolving]
  - Myoglobin urine [Recovering/Resolving]
  - Acute kidney injury [Recovering/Resolving]
  - Somnolence [Recovering/Resolving]
  - Metabolic myopathy [Recovering/Resolving]
  - Delirium [Recovering/Resolving]
  - Blood creatine phosphokinase increased [Recovering/Resolving]

NARRATIVE: CASE EVENT DATE: 20150317
